FAERS Safety Report 7889188-8 (Version None)
Quarter: 2011Q4

REPORT INFORMATION
  Report Type: 
  Country: None (occurrence: None)
  Receive Date: 20111103
  Receipt Date: 20111026
  Transmission Date: 20120403
  Serious: Yes (Hospitalization)
  Sender: FDA-Public Use
  Company Number: BR-GILEAD-2011-0045895

PATIENT
  Sex: Male

DRUGS (8)
  1. RALTEGRAVIR [Concomitant]
     Indication: HIV INFECTION
     Dosage: 1600 UNKNOWN, UNK
     Dates: start: 20110328
  2. ETHAMBUTOL HYDROCHLORIDE [Concomitant]
     Indication: TUBERCULOSIS
     Dosage: 1100 UNKNOWN, UNK
     Dates: start: 20110210
  3. TENOFOVIR DISOPROXIL FUMARATE [Suspect]
     Indication: HIV INFECTION
     Dosage: 300 MG, UNK
     Dates: start: 20110328
  4. PYRAZINAMIDE [Concomitant]
     Indication: TUBERCULOSIS
     Dosage: 1200 UNKNOWN, UNK
     Dates: start: 20110210
  5. PYRIDOXINE HCL [Concomitant]
     Dosage: 40 MG, UNK
     Dates: start: 20110301
  6. RIFAMPIN [Concomitant]
     Indication: TUBERCULOSIS
     Dosage: 600 MG, UNK
     Dates: start: 20110210
  7. LAMIVUDINE [Suspect]
     Indication: HIV INFECTION
     Dosage: 300 MG, UNK
     Dates: start: 20110328
  8. ISONIAZID [Concomitant]
     Indication: TUBERCULOSIS
     Dosage: 300 MG, UNK
     Dates: start: 20110210

REACTIONS (3)
  - PYREXIA [None]
  - DYSPNOEA [None]
  - COUGH [None]
